FAERS Safety Report 5278348-0 (Version None)
Quarter: 2007Q1

REPORT INFORMATION
  Report Type: 
  Country: None (occurrence: None)
  Receive Date: 20070328
  Receipt Date: 20070314
  Transmission Date: 20070707
  Serious: Yes (Hospitalization)
  Sender: FDA-Public Use
  Company Number: FR-BAYER-200710205BFR

PATIENT
  Age: 25 Year
  Sex: Female

DRUGS (1)
  1. IZILOX [Suspect]
     Indication: COUGH
     Route: 048
     Dates: start: 20070226, end: 20070312

REACTIONS (8)
  - ANTI-THYROID ANTIBODY POSITIVE [None]
  - AUTOIMMUNE THYROIDITIS [None]
  - COOMBS TEST POSITIVE [None]
  - GOITRE [None]
  - HAEMOGLOBIN DECREASED [None]
  - HAEMOLYTIC ANAEMIA [None]
  - JAUNDICE [None]
  - SPLENOMEGALY [None]
